FAERS Safety Report 8143458-7 (Version None)
Quarter: 2012Q1

REPORT INFORMATION
  Report Type: 
  Country: None (occurrence: None)
  Receive Date: 20120215
  Receipt Date: 20120215
  Transmission Date: 20120608
  Serious: Yes (Life-Threatening, Hospitalization)
  Sender: FDA-Public Use
  Company Number: None

PATIENT
  Age: 77 Year
  Sex: Male
  Weight: 108 kg

DRUGS (2)
  1. ABCIXIMAB [Suspect]
     Indication: SURGERY
     Dosage: 7.2 MG ONCE IV
     Route: 042
     Dates: start: 20111011, end: 20111011
  2. HEPARIN [Suspect]
     Indication: SURGERY
     Dosage: 11.4 ML PER HOUR IV
     Route: 042
     Dates: start: 20111010, end: 20111012

REACTIONS (1)
  - THROMBOCYTOPENIA [None]
